FAERS Safety Report 8231279-6 (Version None)
Quarter: 2012Q1

REPORT INFORMATION
  Report Type: 
  Country: None (occurrence: None)
  Receive Date: 20120323
  Receipt Date: 20120313
  Transmission Date: 20120608
  Serious: Yes (Hospitalization)
  Sender: FDA-Public Use
  Company Number: US-JNJFOC-20120307014

PATIENT
  Sex: Female
  Weight: 24.9 kg

DRUGS (4)
  1. INFLIXIMAB, RECOMBINANT [Suspect]
     Indication: COLITIS ULCERATIVE
     Route: 042
     Dates: start: 20120302
  2. INFLIXIMAB, RECOMBINANT [Suspect]
     Route: 042
     Dates: start: 20110728
  3. PREDNISONE TAB [Concomitant]
  4. ALL OTHER THERAPEUTIC AGENTS [Concomitant]

REACTIONS (1)
  - COLITIS ULCERATIVE [None]
